FAERS Safety Report 5699302-0 (Version None)
Quarter: 2008Q2

REPORT INFORMATION
  Report Type: 
  Country: None (occurrence: None)
  Receive Date: 20080404
  Receipt Date: 20080320
  Transmission Date: 20081010
  Serious: No
  Sender: FDA-Public Use
  Company Number: US023047

PATIENT
  Sex: Female

DRUGS (2)
  1. FENTORA [Suspect]
     Indication: INTERVERTEBRAL DISC PROTRUSION
     Dosage: 800 UG BUCCAL
     Route: 002
  2. DURAGESIC-100 [Concomitant]

REACTIONS (2)
  - ECONOMIC PROBLEM [None]
  - MEDICATION ERROR [None]
